FAERS Safety Report 8219165-9 (Version None)
Quarter: 2012Q1

REPORT INFORMATION
  Report Type: 
  Country: None (occurrence: None)
  Receive Date: 20120319
  Receipt Date: 20120314
  Transmission Date: 20120608
  Serious: Yes (Disabling, Other)
  Sender: FDA-Public Use
  Company Number: US-PFIZER INC-2011304360

PATIENT
  Sex: Female

DRUGS (5)
  1. FLUOXETINE [Concomitant]
     Indication: DEPRESSION
     Dosage: UNK
     Dates: start: 19960101
  2. ESTRADIOL [Concomitant]
     Indication: MENOPAUSE
     Dosage: UNK
     Dates: start: 20060101
  3. NAPROXEN [Concomitant]
     Indication: ANALGESIC THERAPY
     Dosage: UNK
     Dates: start: 20000101
  4. LEVOXYL [Concomitant]
     Indication: HYPOTHYROIDISM
     Dosage: UNK
     Dates: start: 20060101
  5. CHANTIX [Suspect]
     Indication: SMOKING CESSATION THERAPY
     Dosage: UNK
     Dates: start: 20090101

REACTIONS (5)
  - INTENTIONAL OVERDOSE [None]
  - DEPRESSION [None]
  - SUICIDE ATTEMPT [None]
  - NIGHTMARE [None]
  - ANXIETY [None]
